FAERS Safety Report 4649984-7 (Version None)
Quarter: 2005Q2

REPORT INFORMATION
  Report Type: 
  Country: None (occurrence: None)
  Receive Date: 20050502
  Receipt Date: 20050426
  Transmission Date: 20051028
  Serious: Yes (Other)
  Sender: FDA-Public Use
  Company Number: PHNU2005DE01755

PATIENT
  Sex: Male

DRUGS (2)
  1. LEPONEX / CLOZARIL (CLOZAPINE) [Suspect]
     Indication: SCHIZOPHRENIA
     Dosage: UP TO 175MG/DAY
     Route: 048
     Dates: start: 20050401, end: 20050425
  2. HALDOL [Concomitant]
     Indication: SCHIZOPHRENIA
     Dosage: 10 MG, QD
     Route: 048

REACTIONS (2)
  - BLOOD TRIGLYCERIDES INCREASED [None]
  - HYPERTRIGLYCERIDAEMIA [None]
